FAERS Safety Report 12345651 (Version 1)
Quarter: 2016Q2

REPORT INFORMATION
  Report Type: Report from Study
  Country: US (occurrence: US)
  Receive Date: 20160509
  Receipt Date: 20160509
  Transmission Date: 20160815
  Serious: No
  Sender: FDA-Public Use
  Company Number: US-AMGEN-USASP2016049641

PATIENT
  Age: 71 Year
  Sex: Female

DRUGS (2)
  1. ENBREL [Suspect]
     Active Substance: ETANERCEPT
     Indication: ADRENAL INSUFFICIENCY
     Dosage: 50 MG, QWK
     Route: 065
     Dates: start: 20150810
  2. ENBREL [Suspect]
     Active Substance: ETANERCEPT
     Indication: RHEUMATOID ARTHRITIS
     Dosage: 25 MG, QWK
     Route: 065
     Dates: start: 201502, end: 20160407

REACTIONS (12)
  - Fatigue [Not Recovered/Not Resolved]
  - Feeling abnormal [Unknown]
  - Paraesthesia [Not Recovered/Not Resolved]
  - Limb discomfort [Not Recovered/Not Resolved]
  - Peripheral swelling [Unknown]
  - Hypersensitivity [Unknown]
  - Pain in extremity [Unknown]
  - Hypertension [Unknown]
  - Drug effect incomplete [Unknown]
  - Skin disorder [Not Recovered/Not Resolved]
  - Tinnitus [Unknown]
  - Chills [Not Recovered/Not Resolved]

NARRATIVE: CASE EVENT DATE: 2015
